FAERS Safety Report 14508363 (Version 1)
Quarter: 2018Q1

REPORT INFORMATION
  Report Type: Spontaneous
  Country: CN (occurrence: CN)
  Receive Date: 20180209
  Receipt Date: 20180209
  Transmission Date: 20180509
  Serious: Yes (Hospitalization)
  Sender: FDA-Public Use
  Company Number: CN-ROCHE-2064901

PATIENT
  Age: 64 Year
  Sex: Female
  Weight: 51 kg

DRUGS (4)
  1. MABTHERA [Suspect]
     Active Substance: RITUXIMAB
     Route: 041
     Dates: start: 20170726, end: 20170727
  2. DOXORUBICIN HYDROCHLORIDE. [Suspect]
     Active Substance: DOXORUBICIN HYDROCHLORIDE
     Indication: B-CELL LYMPHOMA
     Route: 041
     Dates: start: 20170725, end: 20170727
  3. CYCLOPHOSPHAMIDE. [Suspect]
     Active Substance: CYCLOPHOSPHAMIDE
     Indication: B-CELL LYMPHOMA
     Route: 041
     Dates: start: 20170725, end: 20170727
  4. MABTHERA [Suspect]
     Active Substance: RITUXIMAB
     Indication: B-CELL LYMPHOMA
     Route: 041
     Dates: start: 20170725, end: 20170725

REACTIONS (1)
  - Traumatic lung injury [Recovering/Resolving]

NARRATIVE: CASE EVENT DATE: 20170814
